FAERS Safety Report 6832160-7 (Version None)
Quarter: 2010Q2

REPORT INFORMATION
  Report Type: 
  Country: None (occurrence: None)
  Receive Date: 20100628
  Receipt Date: 20100615
  Transmission Date: 20101027
  Serious: Yes (Other)
  Sender: FDA-Public Use
  Company Number: US-144975

PATIENT
  Sex: Male
  Weight: 77.1115 kg

DRUGS (1)
  1. HEPAGAM B [Suspect]
     Indication: ANTIVIRAL PROPHYLAXIS
     Dosage: (20000 IU TOTAL INTRAVENOUS))
     Route: 042
     Dates: start: 20100325, end: 20100325

REACTIONS (1)
  - CELLULITIS [None]
